FAERS Safety Report 5897326-1 (Version None)
Quarter: 2008Q3

REPORT INFORMATION
  Report Type: 
  Country: None (occurrence: None)
  Receive Date: 20080911
  Receipt Date: 20070808
  Transmission Date: 20090109
  Serious: Yes (Other)
  Sender: FDA-Public Use
  Company Number: 2007066273

PATIENT
  Sex: Female

DRUGS (2)
  1. ZYRTEC [Suspect]
  2. RANITIDINE [Concomitant]

REACTIONS (2)
  - ANAPHYLACTIC REACTION [None]
  - FEELING ABNORMAL [None]
